FAERS Safety Report 8051853-X (Version None)
Quarter: 2012Q1

REPORT INFORMATION
  Report Type: 
  Country: None (occurrence: None)
  Receive Date: 20120111
  Receipt Date: 20111222
  Transmission Date: 20120608
  Serious: Yes (Other)
  Sender: FDA-Public Use
  Company Number: 2011P1014216

PATIENT
  Age: 60 Year
  Sex: Female
  Weight: 87.5442 kg

DRUGS (14)
  1. FENTANYL [Suspect]
     Indication: NEUROPATHY PERIPHERAL
     Dosage: TDER ; TDER
     Route: 062
     Dates: start: 20111208
  2. FENTANYL [Suspect]
     Indication: PERIPHERAL ARTERIAL OCCLUSIVE DISEASE
     Dosage: TDER ; TDER
     Route: 062
     Dates: start: 20111208
  3. FENTANYL [Suspect]
     Indication: NEUROPATHY PERIPHERAL
     Dosage: TDER ; TDER
     Route: 062
     Dates: start: 20100801, end: 20111001
  4. FENTANYL [Suspect]
     Indication: PERIPHERAL ARTERIAL OCCLUSIVE DISEASE
     Dosage: TDER ; TDER
     Route: 062
     Dates: start: 20100801, end: 20111001
  5. FENTANYL-75 [Suspect]
     Indication: PERIPHERAL ARTERIAL OCCLUSIVE DISEASE
     Dosage: 1 PATCH;Q72HR;TDER
     Route: 062
     Dates: start: 20111001, end: 20111207
  6. FENTANYL-75 [Suspect]
     Indication: NEUROPATHY PERIPHERAL
     Dosage: 1 PATCH;Q72HR;TDER
     Route: 062
     Dates: start: 20111001, end: 20111207
  7. FUROSEMIDE [Concomitant]
  8. ROPINIROLE [Concomitant]
  9. PROPRANOLOL [Concomitant]
  10. SIMVASTATIN [Concomitant]
  11. LORAZEPAM [Concomitant]
  12. HYDROCODONE BITARTRATE [Concomitant]
  13. CITALOPRAM HYDROBROMIDE [Concomitant]
  14. OMEPRAZOLE [Concomitant]

REACTIONS (15)
  - CHROMATOPSIA [None]
  - GASTROENTERITIS VIRAL [None]
  - OVERDOSE [None]
  - DIARRHOEA [None]
  - ANXIETY [None]
  - SOMNOLENCE [None]
  - DRUG WITHDRAWAL SYNDROME [None]
  - FEELING COLD [None]
  - INTERVERTEBRAL DISC DISORDER [None]
  - BLOOD PRESSURE INCREASED [None]
  - FALL [None]
  - COLD SWEAT [None]
  - HEART RATE DECREASED [None]
  - PRODUCT QUALITY ISSUE [None]
  - VOMITING [None]
